FAERS Safety Report 7545100-2 (Version None)
Quarter: 2011Q2

REPORT INFORMATION
  Report Type: 
  Country: None (occurrence: None)
  Receive Date: 20110610
  Receipt Date: 20110610
  Transmission Date: 20111010
  Serious: No
  Sender: FDA-Public Use
  Company Number: None

PATIENT
  Age: 83 Year
  Sex: Female
  Weight: 36.2878 kg

DRUGS (1)
  1. CILOSTAZOL [Suspect]
     Indication: ARTERIAL OCCLUSIVE DISEASE
     Dosage: 100MG 2 A DAY
     Dates: start: 20110520, end: 20110522

REACTIONS (3)
  - OROPHARYNGEAL PAIN [None]
  - PRURITUS [None]
  - DIZZINESS [None]
